FAERS Safety Report 11044457 (Version 2)
Quarter: 2015Q3

REPORT INFORMATION
  Report Type: Spontaneous
  Country: BR (occurrence: BR)
  Receive Date: 20150417
  Receipt Date: 20150714
  Transmission Date: 20151125
  Serious: Yes (Hospitalization, Other)
  Sender: FDA-Public Use
  Company Number: BR-PFIZER INC-2015123758

PATIENT
  Age: 65 Year
  Sex: Female
  Weight: 57 kg

DRUGS (2)
  1. LIPITOR [Suspect]
     Active Substance: ATORVASTATIN CALCIUM
     Indication: BLOOD CHOLESTEROL INCREASED
     Dosage: 40 MG, UNK
     Dates: end: 2013
  2. SYNTHROID [Concomitant]
     Active Substance: LEVOTHYROXINE SODIUM
     Indication: HYPOTHYROIDISM
     Dosage: 1 DF, DAILY

REACTIONS (10)
  - Oedema peripheral [Unknown]
  - Thrombosis [Unknown]
  - Chest pain [Unknown]
  - Amnesia [Unknown]
  - Condition aggravated [Unknown]
  - Dysmenorrhoea [Unknown]
  - Rhabdomyolysis [Unknown]
  - Dyspnoea [Unknown]
  - Blood urine [Unknown]
  - Back pain [Unknown]

NARRATIVE: CASE EVENT DATE: 2012
